FAERS Safety Report 22266157 (Version 1)
Quarter: 2023Q2

REPORT INFORMATION
  Report Type: Report from Study
  Country: IT (occurrence: IT)
  Receive Date: 20230428
  Receipt Date: 20230428
  Transmission Date: 20230721
  Serious: Yes (Other)
  Sender: FDA-Public Use
  Company Number: None

PATIENT
  Age: 11 Year
  Sex: Male
  Weight: 45 kg

DRUGS (9)
  1. METHOTREXATE (METHOTREXATE SODIUM) [Suspect]
     Active Substance: METHOTREXATE SODIUM
     Indication: Burkitt^s lymphoma
     Dosage: 518.4 MG INFUSION OVER 30 MIN. IV ON 02/21 + 4665.6 MG IV SLOW INFUSION OVER 23.30 HOURS ON 02/22/23
     Route: 042
     Dates: start: 20230221, end: 20230222
  2. VINCRISTINE [Suspect]
     Active Substance: VINCRISTINE
     Indication: Burkitt^s lymphoma
     Dosage: 1.55 MILLIGRAM DAILY;
     Route: 065
     Dates: start: 20230221, end: 20230221
  3. CYCLOPHOSPHAMIDE [Suspect]
     Active Substance: CYCLOPHOSPHAMIDE
     Indication: Burkitt^s lymphoma
     Dosage: 207.36 MILLIGRAM DAILY;
     Route: 065
     Dates: start: 20230221, end: 20230226
  4. RITUXIMAB [Suspect]
     Active Substance: RITUXIMAB
     Indication: Burkitt^s lymphoma
     Dosage: 519 MILLIGRAM DAILY;
     Route: 065
     Dates: start: 20230220, end: 20230220
  5. DAUNORUBICIN HYDROCHLORIDE [Suspect]
     Active Substance: DAUNORUBICIN HYDROCHLORIDE
     Indication: Burkitt^s lymphoma
     Dosage: 25.92 MILLIGRAM DAILY;
     Route: 065
     Dates: start: 20230225, end: 20230226
  6. FILGRASTIM [Concomitant]
     Active Substance: FILGRASTIM
     Indication: Product used for unknown indication
     Dosage: 30 MU/0.5 ML
     Route: 065
     Dates: start: 20230303, end: 20230303
  7. PANTOPRAZOLE SODIUM [Concomitant]
     Active Substance: PANTOPRAZOLE SODIUM
     Indication: Product used for unknown indication
     Dosage: 40 MILLIGRAM DAILY;
     Route: 065
     Dates: start: 20230226, end: 20230301
  8. DIFLUCAN [Concomitant]
     Active Substance: FLUCONAZOLE
     Indication: Product used for unknown indication
     Dosage: 270 MILLIGRAM DAILY;
     Route: 065
     Dates: start: 20230226, end: 20230306
  9. FILGRASTIM [Concomitant]
     Active Substance: FILGRASTIM
     Indication: Product used for unknown indication
     Dosage: 30 MU/0.5 ML/DAY
     Route: 065
     Dates: start: 20230303, end: 20230307

REACTIONS (5)
  - Drug-induced liver injury [Recovered/Resolved]
  - Hypogammaglobulinaemia [Unknown]
  - Pancytopenia [Recovered/Resolved]
  - Stomatitis [Recovered/Resolved]
  - Anaemia [Recovered/Resolved]

NARRATIVE: CASE EVENT DATE: 20230228
